FAERS Safety Report 24706037 (Version 1)
Quarter: 2024Q4

REPORT INFORMATION
  Report Type: Spontaneous
  Country: US (occurrence: US)
  Receive Date: 20241206
  Receipt Date: 20241206
  Transmission Date: 20250115
  Serious: Yes (Death)
  Sender: MIRUM PHARMACEUTICALS
  Company Number: US-TRAVERE THERAPEUTICS, INC.-2017RTN00112

PATIENT

DRUGS (1)
  1. CHOLBAM [Suspect]
     Active Substance: CHOLIC ACID
     Indication: Product used for unknown indication
     Dosage: UNK UNK, UNK
     Route: 048

REACTIONS (1)
  - Death [Fatal]

NARRATIVE: CASE EVENT DATE: 20171010
